FAERS Safety Report 9904316 (Version 1)
Quarter: 2014Q1

REPORT INFORMATION
  Report Type: Spontaneous
  Country: US (occurrence: US)
  Receive Date: 20140218
  Receipt Date: 20140218
  Transmission Date: 20141002
  Serious: No
  Sender: FDA-Public Use
  Company Number: US-PFIZER INC-2014040527

PATIENT
  Sex: 0

DRUGS (2)
  1. LEVOXYL [Suspect]
     Dosage: UNK
     Dates: end: 201312
  2. LEVOTHYROXINE SODIUM [Suspect]
     Dosage: UNK
     Dates: start: 201312

REACTIONS (1)
  - Weight increased [Unknown]
